FAERS Safety Report 17685210 (Version 1)
Quarter: 2020Q2

REPORT INFORMATION
  Report Type: Spontaneous
  Country: US (occurrence: US)
  Receive Date: 20200420
  Receipt Date: 20200420
  Transmission Date: 20200714
  Serious: No
  Sender: FDA-Public Use
  Company Number: US-SA-2020SA097749

PATIENT
  Sex: Male

DRUGS (8)
  1. VIBERZI [Concomitant]
     Active Substance: ELUXADOLINE
  2. AZELASTINE. [Concomitant]
     Active Substance: AZELASTINE HYDROCHLORIDE
  3. FEROSUL [Concomitant]
     Active Substance: FERROUS SULFATE
  4. TRIMETHOPRIM SULFAMETHOXAZOLE [Concomitant]
     Active Substance: SULFAMETHOXAZOLE\TRIMETHOPRIM
  5. ZOLPIDEM [Concomitant]
     Active Substance: ZOLPIDEM TARTRATE
  6. MUPIROCIN. [Concomitant]
     Active Substance: MUPIROCIN
  7. MYRBETRIQ [Concomitant]
     Active Substance: MIRABEGRON
  8. DUPIXENT [Suspect]
     Active Substance: DUPILUMAB
     Indication: DERMATITIS ATOPIC
     Dosage: 300 MG, QOW
     Route: 058
     Dates: start: 20190119

REACTIONS (1)
  - Diarrhoea [Not Recovered/Not Resolved]
